FAERS Safety Report 7178459-9 (Version None)
Quarter: 2010Q4

REPORT INFORMATION
  Report Type: 
  Country: None (occurrence: None)
  Receive Date: 20101220
  Receipt Date: 20101207
  Transmission Date: 20110411
  Serious: Yes (Death)
  Sender: FDA-Public Use
  Company Number: FR-AMGEN-FRASP2010006888

PATIENT

DRUGS (4)
  1. ENBREL [Suspect]
     Dosage: 25 MG, FREQUENCY UNSPECIFIED
     Dates: start: 20100101
  2. ENBREL [Suspect]
     Dosage: 25 MG, FREQUENCY UNSPECIFIED
     Dates: start: 20101101
  3. CORTISONE [Concomitant]
     Dosage: 12.5 MG
  4. CORTISONE [Concomitant]
     Dosage: 12.5 MG, UNK

REACTIONS (4)
  - CARDIO-RESPIRATORY ARREST [None]
  - CONVULSION [None]
  - DIARRHOEA [None]
  - MULTI-ORGAN FAILURE [None]
